FAERS Safety Report 6403913-4 (Version None)
Quarter: 2009Q4

REPORT INFORMATION
  Report Type: 
  Country: None (occurrence: None)
  Receive Date: 20091016
  Receipt Date: 20090708
  Transmission Date: 20100525
  Serious: Yes (Hospitalization)
  Sender: FDA-Public Use
  Company Number: US-ALEXION-A200900549

PATIENT

DRUGS (13)
  1. SOLIRIS [Suspect]
     Indication: PAROXYSMAL NOCTURNAL HAEMOGLOBINURIA
     Dosage: 600 MG, SINGLE
     Route: 042
     Dates: start: 20090126, end: 20090126
  2. SOLIRIS [Suspect]
     Dosage: 600 MG, QW
     Route: 042
     Dates: start: 20090201, end: 20090301
  3. SOLIRIS [Suspect]
     Dosage: 900 MG, Q2W
     Dates: start: 20090101
  4. ALTACE [Concomitant]
     Dosage: UNK
     Route: 048
  5. LASIX [Concomitant]
     Dosage: UNK
     Route: 048
  6. METOPROLOL [Concomitant]
     Dosage: UNK
     Route: 048
  7. FOLIC ACID [Concomitant]
     Dosage: UNK
     Route: 048
  8. COLACE [Concomitant]
     Dosage: UNK
     Route: 048
  9. AMBIEN [Concomitant]
     Dosage: UNK
     Route: 048
  10. LIPITOR [Concomitant]
     Dosage: UNK
     Route: 048
  11. PRILOSEC [Concomitant]
     Dosage: UNK
     Route: 048
  12. FERROUS SULFATE TAB [Concomitant]
     Dosage: UNK
     Route: 048
  13. TINACTIN [Concomitant]
     Dosage: UNK
     Route: 061

REACTIONS (5)
  - ABDOMINAL PAIN UPPER [None]
  - ANAEMIA [None]
  - CELLULITIS [None]
  - FATIGUE [None]
  - HAEMOGLOBINURIA [None]
